FAERS Safety Report 15988098 (Version 1)
Quarter: 2019Q1

REPORT INFORMATION
  Report Type: Spontaneous
  Country: FR (occurrence: FR)
  Receive Date: 20190220
  Receipt Date: 20190220
  Transmission Date: 20190418
  Serious: Yes (Death)
  Sender: FDA-Public Use
  Company Number: FR-ACCORD-108176

PATIENT
  Age: 83 Year
  Sex: Female
  Weight: 89 kg

DRUGS (6)
  1. ATORVASTATIN/ATORVASTATIN CALCIUM [Suspect]
     Active Substance: ATORVASTATIN CALCIUM
     Indication: PRODUCT USED FOR UNKNOWN INDICATION
     Route: 048
     Dates: end: 20180627
  2. PHLOROGLUCINOL TRIMETHYLPHLOROGLUCINOL ARROW [Suspect]
     Active Substance: PHLOROGLUCINOL
     Indication: PAIN
     Route: 042
     Dates: start: 20180624, end: 20180627
  3. NEFOPAM/NEFOPAM HYDROCHLORIDE [Suspect]
     Active Substance: NEFOPAM
     Indication: PAIN
     Route: 042
     Dates: start: 20180624, end: 20180628
  4. LORAZEPAM. [Suspect]
     Active Substance: LORAZEPAM
     Indication: ANXIETY
     Route: 048
     Dates: end: 20180627
  5. TRIMEBUTINE [Suspect]
     Active Substance: TRIMEBUTINE
     Indication: PAIN
     Route: 042
     Dates: start: 20180624, end: 20180630
  6. PHYTOMENADIONE [Suspect]
     Active Substance: PHYTONADIONE
     Indication: PRODUCT USED FOR UNKNOWN INDICATION
     Route: 042
     Dates: start: 20180624, end: 20180629

REACTIONS (2)
  - Anaemia [Fatal]
  - Acute kidney injury [Fatal]

NARRATIVE: CASE EVENT DATE: 20180625
